FAERS Safety Report 15283608 (Version 3)
Quarter: 2019Q3

REPORT INFORMATION
  Report Type: Report from Study
  Country: NL (occurrence: NL)
  Receive Date: 20180816
  Receipt Date: 20190917
  Transmission Date: 20191004
  Serious: Yes (Death, Life-Threatening, Hospitalization)
  Sender: FDA-Public Use
  Company Number: NL-TEVA-2018-NL-941795

PATIENT
  Age: 69 Year
  Sex: Male

DRUGS (10)
  1. METHOTREXATE. [Suspect]
     Active Substance: METHOTREXATE
     Indication: RHEUMATOID ARTHRITIS
     Dosage: 25MG, 1X/W
     Route: 065
     Dates: start: 20180116, end: 20180612
  2. TOCILIZUMAB. [Suspect]
     Active Substance: TOCILIZUMAB
     Indication: RHEUMATOID ARTHRITIS
     Dosage: 162MG, 1X/W
     Route: 065
     Dates: start: 20160914, end: 20180612
  3. DICLOFENAC RETARD  75MG [Concomitant]
     Dosage: 2DD75MG
  4. OMEPRAZOL 40MG [Concomitant]
     Dosage: 40 MILLIGRAM DAILY; 1DD1
  5. ALENDRONINEZUUR 70MG [Concomitant]
     Dosage: 1XPER WEEK
  6. PREDNISOLONE. [Suspect]
     Active Substance: PREDNISOLONE
     Indication: RHEUMATOID ARTHRITIS
     Dosage: 7.5MG, 2X/D
     Route: 065
     Dates: start: 20180116, end: 20180831
  7. FOLIUMZUUR [Concomitant]
     Active Substance: FOLIC ACID
     Dosage: 10 MILLIGRAM DAILY; 1DD10MG
  8. CITALOPRAM [Concomitant]
     Active Substance: CITALOPRAM HYDROBROMIDE
     Dosage: 20 MILLIGRAM DAILY; 1DD20MG
  9. FENPROCOUMON [Concomitant]
     Active Substance: PHENPROCOUMON
     Route: 065
  10. CALCIUMCARB/COLECALC 800IE/500MG [Concomitant]
     Dosage: 1DD1, 1 DF
     Route: 065

REACTIONS (2)
  - JC virus CSF test positive [Unknown]
  - Progressive multifocal leukoencephalopathy [Recovered/Resolved]

NARRATIVE: CASE EVENT DATE: 20180612
